FAERS Safety Report 6324416-1 (Version None)
Quarter: 2009Q3

REPORT INFORMATION
  Report Type: 
  Country: None (occurrence: None)
  Receive Date: 20090820
  Receipt Date: 20090810
  Transmission Date: 20100115
  Serious: Yes (Other)
  Sender: FDA-Public Use
  Company Number: 238856K09USA

PATIENT
  Age: 47 Year
  Sex: Female

DRUGS (4)
  1. REBIF [Suspect]
     Indication: MULTIPLE SCLEROSIS
     Dosage: 22 MCG, 3 IN 1 WEEKS, SUBUCTANEOUS
     Route: 058
     Dates: start: 20090716, end: 20090728
  2. REBIF [Suspect]
     Indication: MULTIPLE SCLEROSIS
     Dosage: 22 MCG, 3 IN 1 WEEKS, SUBUCTANEOUS
     Route: 058
     Dates: start: 20090729
  3. GABAPENTIN [Concomitant]
  4. LORAZEPAM [Concomitant]

REACTIONS (8)
  - CONVULSION [None]
  - HAIR TEXTURE ABNORMAL [None]
  - HYPERSENSITIVITY [None]
  - MULTIPLE SCLEROSIS RELAPSE [None]
  - MUSCULAR WEAKNESS [None]
  - SKIN EXFOLIATION [None]
  - TREMOR [None]
  - URINE COLOUR ABNORMAL [None]
